FAERS Safety Report 17912601 (Version 3)
Quarter: 2020Q3

REPORT INFORMATION
  Report Type: Spontaneous
  Country: CL (occurrence: CL)
  Receive Date: 20200618
  Receipt Date: 20200703
  Transmission Date: 20201103
  Serious: Yes (Hospitalization, Other)
  Sender: FDA-Public Use
  Company Number: CL-SA-2020SA103535

PATIENT

DRUGS (1)
  1. FABRAZYME [Suspect]
     Active Substance: AGALSIDASE BETA
     Indication: FABRY^S DISEASE
     Dosage: 70 MG, QOW
     Route: 041
     Dates: start: 20190405, end: 20200531

REACTIONS (8)
  - Gastrointestinal infection [Recovered/Resolved]
  - Arrhythmia [Unknown]
  - Blood pressure systolic increased [Recovered/Resolved]
  - Pyrexia [Recovered/Resolved]
  - Blood pressure increased [Unknown]
  - Myalgia [Recovered/Resolved]
  - Chest discomfort [Recovered/Resolved]
  - Suspected COVID-19 [Unknown]

NARRATIVE: CASE EVENT DATE: 20200610
